FAERS Safety Report 7575379-2 (Version None)
Quarter: 2011Q2

REPORT INFORMATION
  Report Type: 
  Country: None (occurrence: None)
  Receive Date: 20110627
  Receipt Date: 20110620
  Transmission Date: 20111010
  Serious: Yes (Other)
  Sender: FDA-Public Use
  Company Number: US-ABBOTT-11P-163-0734330-00

PATIENT
  Sex: Female
  Weight: 55.842 kg

DRUGS (4)
  1. HUMIRA [Suspect]
     Indication: CROHN'S DISEASE
     Route: 058
     Dates: start: 20110401
  2. PREVACID [Concomitant]
     Indication: GASTROOESOPHAGEAL REFLUX DISEASE
  3. PREDNISONE [Suspect]
     Indication: URINARY RETENTION
     Dates: start: 20110501, end: 20110501
  4. PREDNISONE [Suspect]
     Indication: TREMOR
     Dates: start: 20080101, end: 20080101

REACTIONS (2)
  - URINARY RETENTION [None]
  - TREMOR [None]
